FAERS Safety Report 11245952 (Version 1)
Quarter: 2015Q3

REPORT INFORMATION
  Report Type: Spontaneous
  Country: US (occurrence: US)
  Receive Date: 20150708
  Receipt Date: 20150708
  Transmission Date: 20151125
  Serious: No
  Sender: FDA-Public Use
  Company Number: US-009507513-1506USA007738

PATIENT
  Weight: 79.82 kg

DRUGS (2)
  1. NEXPLANON [Suspect]
     Active Substance: ETONOGESTREL
     Dosage: 1 DF, 1 ROD ONCE EVERY 3 YEARS
     Route: 059
     Dates: start: 20150612, end: 20150612
  2. NEXPLANON [Suspect]
     Active Substance: ETONOGESTREL
     Dosage: 1 DF, 1 ROD ONCE EVERY 3 YEARS
     Route: 059
     Dates: start: 201506

REACTIONS (3)
  - No adverse event [Unknown]
  - Product quality issue [Recovered/Resolved]
  - Device difficult to use [Recovered/Resolved]

NARRATIVE: CASE EVENT DATE: 20150612
